FAERS Safety Report 10901170 (Version 2)
Quarter: 2015Q1

REPORT INFORMATION
  Report Type: Report from Study
  Country: EG (occurrence: EG)
  Receive Date: 20150310
  Receipt Date: 20150312
  Transmission Date: 20150721
  Serious: Yes (Death, Hospitalization, Other)
  Sender: FDA-Public Use
  Company Number: EG-B.I. PHARMACEUTICALS,INC./RIDGEFIELD-2015-BI-12014BI

PATIENT
  Age: 50 Year
  Sex: Male
  Weight: 55.1 kg

DRUGS (3)
  1. IMODIUM [Concomitant]
     Active Substance: LOPERAMIDE HYDROCHLORIDE
     Indication: PRODUCT USED FOR UNKNOWN INDICATION
     Dosage: 2MG CAP
     Route: 065
     Dates: start: 20150303, end: 20150303
  2. KETOLAC [Concomitant]
     Indication: PRODUCT USED FOR UNKNOWN INDICATION
     Dosage: DOSE PER APPLICATION AND DAILY DOSE: 30MG/2ML IN EVERY 24 HOURS
     Route: 065
     Dates: start: 20150215, end: 20150226
  3. BIBW 2992 [Suspect]
     Active Substance: AFATINIB
     Indication: SQUAMOUS CELL CARCINOMA OF THE ORAL CAVITY
     Dosage: 40 MG
     Route: 048
     Dates: start: 20150228, end: 20150304

REACTIONS (12)
  - Hyponatraemia [Unknown]
  - Hypoalbuminaemia [Unknown]
  - Pneumonitis [Fatal]
  - Gamma-glutamyltransferase increased [Recovered/Resolved]
  - International normalised ratio increased [Unknown]
  - Aspartate aminotransferase increased [Unknown]
  - Stomatitis [Unknown]
  - Lymphopenia [Unknown]
  - Fatigue [Unknown]
  - Blood bilirubin increased [Not Recovered/Not Resolved]
  - Alanine aminotransferase increased [Recovered/Resolved]
  - Weight decreased [Unknown]

NARRATIVE: CASE EVENT DATE: 20150303
